FAERS Safety Report 6409552-3 (Version None)
Quarter: 2009Q4

REPORT INFORMATION
  Report Type: 
  Country: None (occurrence: None)
  Receive Date: 20091020
  Receipt Date: 20091020
  Transmission Date: 20100525
  Serious: Yes (Death, Life-Threatening, Hospitalization)
  Sender: FDA-Public Use
  Company Number: None

PATIENT
  Age: 68 Year
  Sex: Male
  Weight: 86.1834 kg

DRUGS (4)
  1. ZEVALIN [Suspect]
     Indication: LYMPHOMA
     Dosage: IV
     Route: 042
     Dates: start: 20090804
  2. ZEVALIN [Suspect]
     Indication: LYMPHOMA
     Dosage: IV
     Route: 042
     Dates: start: 20090811
  3. GABAPENTIN [Concomitant]
  4. CARBAMAZEPINE [Concomitant]

REACTIONS (2)
  - CAUSTIC INJURY [None]
  - RENAL FAILURE [None]
